FAERS Safety Report 17466184 (Version 2)
Quarter: 2020Q1

REPORT INFORMATION
  Report Type: Report from Study
  Country: SG (occurrence: SG)
  Receive Date: 20200227
  Receipt Date: 20200304
  Transmission Date: 20200409
  Serious: Yes (Death)
  Sender: FDA-Public Use
  Company Number: SG-BEH-2020113851

PATIENT
  Age: 4 Year
  Sex: Female

DRUGS (1)
  1. HUMAN IMMUNOGLOBULIN (GENERIC) [Suspect]
     Active Substance: HUMAN IMMUNOGLOBULIN G
     Indication: TOXIC EPIDERMAL NECROLYSIS
     Dosage: 1 GRAM PER KILOGRAM, QD
     Route: 042

REACTIONS (2)
  - Product use in unapproved indication [Fatal]
  - Drug ineffective for unapproved indication [Fatal]
